FAERS Safety Report 6678646-X (Version None)
Quarter: 2010Q2

REPORT INFORMATION
  Report Type: 
  Country: None (occurrence: None)
  Receive Date: 20100413
  Receipt Date: 20100401
  Transmission Date: 20101027
  Serious: Yes (Other)
  Sender: FDA-Public Use
  Company Number: GB-PFIZER INC-2010043712

PATIENT
  Age: 5 Year

DRUGS (1)
  1. ZYVOX [Suspect]
     Indication: STAPHYLOCOCCAL OSTEOMYELITIS
     Dosage: UNK

REACTIONS (1)
  - STAPHYLOCOCCAL OSTEOMYELITIS [None]
